FAERS Safety Report 7509774-4 (Version None)
Quarter: 2011Q2

REPORT INFORMATION
  Report Type: 
  Country: None (occurrence: None)
  Receive Date: 20110527
  Receipt Date: 20110517
  Transmission Date: 20111010
  Serious: Yes (Death, Hospitalization)
  Sender: FDA-Public Use
  Company Number: GB-GENENTECH-315548

PATIENT
  Sex: Female
  Weight: 52 kg

DRUGS (2)
  1. METHOTREXATE [Concomitant]
     Indication: PRODUCT USED FOR UNKNOWN INDICATION
     Dosage: UNK
     Dates: start: 20090415, end: 20110112
  2. RITUXIMAB [Suspect]
     Indication: RHEUMATOID ARTHRITIS
     Dosage: 1000 MG, UNK
     Route: 065
     Dates: start: 20071121, end: 20081220

REACTIONS (13)
  - PYREXIA [None]
  - INCISIONAL HERNIA [None]
  - GASTROINTESTINAL PERFORATION [None]
  - GOITRE [None]
  - SCAR [None]
  - BLOOD SODIUM DECREASED [None]
  - GASTROINTESTINAL HAEMORRHAGE [None]
  - DECUBITUS ULCER [None]
  - HAEMOGLOBIN DECREASED [None]
  - DYSPHAGIA [None]
  - METASTATIC NEOPLASM [None]
  - DIARRHOEA [None]
  - ULCER [None]
